FAERS Safety Report 5530882-1 (Version None)
Quarter: 2007Q4

REPORT INFORMATION
  Report Type: 
  Country: None (occurrence: None)
  Receive Date: 20071130
  Receipt Date: 20071116
  Transmission Date: 20080405
  Serious: Yes (Hospitalization)
  Sender: FDA-Public Use
  Company Number: GB-RANBAXY-2007RR-11537

PATIENT

DRUGS (3)
  1. AMLODIPINE BASICS 5MG TABLETS [Suspect]
  2. ASPIRIN TABLETS BP 300MG [Suspect]
  3. PLAVIX [Suspect]

REACTIONS (2)
  - CEREBROVASCULAR ACCIDENT [None]
  - DRUG HYPERSENSITIVITY [None]
